FAERS Safety Report 8236861-8 (Version None)
Quarter: 2012Q1

REPORT INFORMATION
  Report Type: 
  Country: None (occurrence: None)
  Receive Date: 20120327
  Receipt Date: 20111209
  Transmission Date: 20120608
  Serious: No
  Sender: FDA-Public Use
  Company Number: US-GLAXOSMITHKLINE-A0957541A

PATIENT
  Age: 33 Year
  Sex: Female

DRUGS (6)
  1. LAMICTAL [Suspect]
     Indication: EPILEPSY
     Dosage: 200MG TWICE PER DAY
     Route: 048
  2. CLONAZEPAM [Concomitant]
  3. CELEXA [Concomitant]
  4. RANITIDINE [Concomitant]
  5. ZANAFLEX [Concomitant]
  6. DEPO-SHOT [Concomitant]

REACTIONS (2)
  - DIPLOPIA [None]
  - VISUAL IMPAIRMENT [None]
